FAERS Safety Report 7106298-3 (Version None)
Quarter: 2010Q4

REPORT INFORMATION
  Report Type: 
  Country: None (occurrence: None)
  Receive Date: 20101116
  Receipt Date: 20101105
  Transmission Date: 20110411
  Serious: Yes (Other)
  Sender: FDA-Public Use
  Company Number: US-CELGENEUS-163-21880-10111192

PATIENT
  Sex: Male

DRUGS (5)
  1. REVLIMID [Suspect]
     Indication: MULTIPLE MYELOMA
     Route: 048
     Dates: start: 20090328, end: 20090101
  2. REVLIMID [Suspect]
     Dosage: 25-10MG
     Route: 048
     Dates: start: 20090328, end: 20100101
  3. REVLIMID [Suspect]
     Route: 048
     Dates: start: 20100301, end: 20101001
  4. DEXAMETHASONE [Concomitant]
     Route: 065
  5. ASPIRIN [Concomitant]
     Route: 065

REACTIONS (1)
  - THYROID CANCER [None]
